FAERS Safety Report 12346506 (Version 1)
Quarter: 2016Q2

REPORT INFORMATION
  Report Type: Spontaneous
  Country: US (occurrence: None)
  Receive Date: 20160506
  Receipt Date: 20160506
  Transmission Date: 20160815
  Serious: Yes (Hospitalization)
  Sender: FDA-Public Use
  Company Number: None

PATIENT
  Age: 70 Year

DRUGS (2)
  1. ZYTIGA [Suspect]
     Active Substance: ABIRATERONE ACETATE
     Indication: PROSTATE CANCER
     Route: 048
     Dates: start: 20150422, end: 201605
  2. HYDROMORPHONE [Concomitant]
     Active Substance: HYDROMORPHONE

REACTIONS (1)
  - Disease progression [None]

NARRATIVE: CASE EVENT DATE: 201605
